FAERS Safety Report 4955921-8 (Version None)
Quarter: 2006Q1

REPORT INFORMATION
  Report Type: 
  Country: None (occurrence: None)
  Receive Date: 20060328
  Receipt Date: 20050308
  Transmission Date: 20060701
  Serious: Yes (Hospitalization)
  Sender: FDA-Public Use
  Company Number: FR-BOEHRINGER INGELHEIM PHARMACEUTICALS, INC.-2005-FF-00158FF

PATIENT
  Sex: Male
  Weight: 49 kg

DRUGS (8)
  1. TIPRANAVIR + RITONAVIR CO-ADMIN [Suspect]
     Indication: HIV INFECTION
     Dosage: TPV/RTV 500/200 MG B.I.D.
     Route: 048
     Dates: start: 20040614
  2. EPIVIR [Concomitant]
     Indication: HIV INFECTION
     Route: 048
     Dates: start: 20040729, end: 20051116
  3. ZERIT [Concomitant]
     Indication: HIV INFECTION
     Route: 048
     Dates: start: 20040729, end: 20050501
  4. ZIAGEN [Concomitant]
     Indication: HIV INFECTION
     Route: 048
     Dates: start: 20040729, end: 20051116
  5. SUSTIVA [Concomitant]
     Indication: HIV INFECTION
     Route: 048
     Dates: start: 20040614
  6. FUZEON [Concomitant]
     Indication: HIV INFECTION
     Route: 058
     Dates: start: 20040614
  7. BACTRIM [Concomitant]
     Indication: PROPHYLAXIS
     Dosage: ONE TABLET DAILY
     Route: 048
  8. KIVEXA [Concomitant]
     Indication: HIV INFECTION
     Dosage: ONE TABLET DAILY
     Route: 048
     Dates: start: 20051116

REACTIONS (6)
  - ANAEMIA [None]
  - CACHEXIA [None]
  - CHOLESTASIS [None]
  - HERPES VIRUS INFECTION [None]
  - LIPODYSTROPHY ACQUIRED [None]
  - MONARTHRITIS [None]
